FAERS Safety Report 8605356-1 (Version None)
Quarter: 2012Q3

REPORT INFORMATION
  Report Type: 
  Country: None (occurrence: None)
  Receive Date: 20120820
  Receipt Date: 20120813
  Transmission Date: 20120928
  Serious: Yes (Death)
  Sender: FDA-Public Use
  Company Number: FR-SANOFI-AVENTIS-2012SA057942

PATIENT
  Age: 83 Year
  Sex: Male

DRUGS (6)
  1. LERCANIDIPINE [Concomitant]
     Route: 048
  2. PERINDOPRIL ERBUMINE [Concomitant]
     Route: 048
  3. SOTALOL HCL [Concomitant]
     Route: 048
  4. LOVENOX [Suspect]
     Route: 058
     Dates: start: 20120604, end: 20120614
  5. RISPERDAL [Suspect]
     Indication: DEMENTIA
     Route: 048
  6. LEPTICUR [Concomitant]
     Indication: DEMENTIA
     Route: 048

REACTIONS (1)
  - PULMONARY EMBOLISM [None]
